FAERS Safety Report 24268887 (Version 1)
Quarter: 2024Q3

REPORT INFORMATION
  Report Type: Spontaneous
  Country: US (occurrence: US)
  Receive Date: 20240830
  Receipt Date: 20240830
  Transmission Date: 20241017
  Serious: No
  Sender: ROCHE
  Company Number: US-ROCHE-3579853

PATIENT
  Age: 46 Year
  Sex: Male

DRUGS (1)
  1. COBIMETINIB [Suspect]
     Active Substance: COBIMETINIB
     Indication: Langerhans^ cell histiocytosis
     Dosage: ON 21 DAYS AND OFF 7 DAYS
     Route: 065

REACTIONS (1)
  - Intraocular pressure increased [Unknown]
